FAERS Safety Report 8770624 (Version 2)
Quarter: 2012Q4

REPORT INFORMATION
  Report Type: 
  Country: KR (occurrence: KR)
  Receive Date: 20120906
  Receipt Date: 20120920
  Transmission Date: 20130627
  Serious: Yes (Hospitalization)
  Sender: FDA-Public Use
  Company Number: KR-ROCHE-1117776

PATIENT
  Age: 85 Year
  Sex: Female

DRUGS (2)
  1. RIVOTRIL [Suspect]
     Indication: DIZZINESS
     Route: 048
     Dates: start: 20120820, end: 20120830
  2. AMANTADINE [Concomitant]
     Route: 048

REACTIONS (1)
  - Fall [Recovering/Resolving]
